FAERS Safety Report 9477852 (Version 1)
Quarter: 2013Q3

REPORT INFORMATION
  Report Type: Spontaneous
  Country: GB (occurrence: None)
  Receive Date: 20130822
  Receipt Date: 20130822
  Transmission Date: 20140515
  Serious: Yes (Death, Life-Threatening, Hospitalization)
  Sender: FDA-Public Use
  Company Number: GER/UKI/13/0034083

PATIENT
  Age: 83 Year
  Sex: Male
  Weight: 52.6 kg

DRUGS (6)
  1. DONEPEZIL (DONEPEZIL) [Suspect]
     Indication: DEMENTIA
     Dosage: 5MG, 2 IN 1 D, ORAL
     Dates: end: 20130723
  2. AMITRIPTYLINE (AMITRIPTYLINE) [Concomitant]
  3. CALCICHEW D3 [Concomitant]
  4. GANFORT (GANFORT) [Concomitant]
  5. PROPRANOLOL (PROPRANOLOL) [Concomitant]
  6. TRAMADOL (TRAMADOL) [Concomitant]

REACTIONS (1)
  - Duodenal ulcer haemorrhage [None]
